FAERS Safety Report 4789703-7 (Version None)
Quarter: 2005Q4

REPORT INFORMATION
  Report Type: 
  Country: None (occurrence: None)
  Receive Date: 20051005
  Receipt Date: 20051005
  Transmission Date: 20060501
  Serious: Yes (Hospitalization)
  Sender: FDA-Public Use
  Company Number: None

PATIENT
  Age: 14 Year
  Sex: Female
  Weight: 71.7 kg

DRUGS (3)
  1. CARIMUNE [Suspect]
     Indication: IMMUNODEFICIENCY
     Dosage: 30 GRAMS MONTHLY IV
     Route: 042
  2. HEPARIN [Suspect]
     Dosage: IV
     Route: 042
  3. BD SALINE FLUSHES [Concomitant]

REACTIONS (9)
  - ANAEMIA [None]
  - BLOOD CULTURE POSITIVE [None]
  - FEELING ABNORMAL [None]
  - HEADACHE [None]
  - PHARMACEUTICAL PRODUCT COMPLAINT [None]
  - POOR QUALITY DRUG ADMINISTERED [None]
  - PSEUDOMONAS INFECTION [None]
  - PYREXIA [None]
  - STAPHYLOCOCCAL INFECTION [None]
